FAERS Safety Report 5180955-0 (Version None)
Quarter: 2006Q4

REPORT INFORMATION
  Report Type: 
  Country: None (occurrence: None)
  Receive Date: 20061220
  Receipt Date: 20061211
  Transmission Date: 20070319
  Serious: Yes (Other)
  Sender: FDA-Public Use
  Company Number: US-JNJFOC-20061200232

PATIENT
  Sex: Male

DRUGS (1)
  1. REMICADE [Suspect]
     Indication: CROHN'S DISEASE
     Dosage: 12 DOSES
     Route: 042

REACTIONS (3)
  - ARTHRALGIA [None]
  - DEMYELINATION [None]
  - PARAESTHESIA [None]
